FAERS Safety Report 8481061 (Version 9)
Quarter: 2013Q1

REPORT INFORMATION
  Report Type: Spontaneous
  Country: US (occurrence: US)
  Receive Date: 20120328
  Receipt Date: 20130219
  Transmission Date: 20140127
  Serious: Yes (Hospitalization, Disabling, Other)
  Sender: FDA-Public Use
  Company Number: US-MERCK-1203USA03479

PATIENT
  Sex: Female
  Weight: 82.86 kg

DRUGS (10)
  1. FOSAMAX [Suspect]
     Indication: OSTEOPOROSIS
     Dosage: 10 MG, QD
     Route: 048
     Dates: start: 1998, end: 200105
  2. FOSAMAX [Suspect]
     Indication: OSTEOPENIA
     Dosage: 35 MG, UNK
     Route: 048
     Dates: start: 20050519, end: 20060411
  3. FOSAMAX [Suspect]
     Dosage: 70 MG, UNK
     Route: 048
     Dates: start: 20060720, end: 20080102
  4. FOSAMAX [Suspect]
     Dosage: 70 MG, UNK
     Route: 048
     Dates: start: 20080530
  5. ALENDRONATE SODIUM [Suspect]
     Indication: OSTEOPENIA
     Dosage: 70 MG, UNK
     Route: 048
     Dates: start: 20080325, end: 20110513
  6. ALENDRONATE SODIUM [Suspect]
     Indication: OSTEOPOROSIS
  7. CALTRATE WITH VITAMIN D [Concomitant]
     Indication: OSTEOPENIA
     Dosage: 600 MG, BID
  8. GLYBURIDE [Concomitant]
     Indication: TYPE 2 DIABETES MELLITUS
  9. ALENDRONATE SODIUM [Suspect]
     Indication: OSTEOPENIA
     Dosage: 70 MG, UNK
     Route: 048
     Dates: start: 20100830
  10. ALENDRONATE SODIUM [Suspect]
     Indication: OSTEOPOROSIS

REACTIONS (60)
  - Femur fracture [Recovered/Resolved]
  - Hip fracture [Not Recovered/Not Resolved]
  - Spinal compression fracture [Unknown]
  - Osteoporosis [Not Recovered/Not Resolved]
  - Stress fracture [Not Recovered/Not Resolved]
  - Femur fracture [Not Recovered/Not Resolved]
  - Low turnover osteopathy [Not Recovered/Not Resolved]
  - Fall [Unknown]
  - Peripheral vascular disorder [Unknown]
  - Cardiac failure congestive [Unknown]
  - Femur fracture [Unknown]
  - Open reduction of fracture [Unknown]
  - Humerus fracture [Unknown]
  - Intramedullary rod insertion [Unknown]
  - Pelvic fracture [Unknown]
  - Renal failure [Unknown]
  - Abdominal hernia [Unknown]
  - Arthropathy [Unknown]
  - Fall [Unknown]
  - Fall [Unknown]
  - Adenoidectomy [Unknown]
  - Tonsillar disorder [Unknown]
  - Ankle fracture [Unknown]
  - Carotid endarterectomy [Unknown]
  - Umbilical hernia repair [Unknown]
  - Upper limb fracture [Unknown]
  - Umbilical hernia [Unknown]
  - Fall [Unknown]
  - Carotid artery disease [Unknown]
  - Fall [Unknown]
  - Hypercholesterolaemia [Unknown]
  - Spinal osteoarthritis [Unknown]
  - Atrial fibrillation [Unknown]
  - Neuropathy peripheral [Unknown]
  - Polyarthritis [Unknown]
  - Skin ulcer [Unknown]
  - Anaemia [Unknown]
  - Diabetic neuropathy [Unknown]
  - Fungal skin infection [Unknown]
  - Chronic obstructive pulmonary disease [Not Recovered/Not Resolved]
  - Bronchitis chronic [Not Recovered/Not Resolved]
  - Pneumonia [Unknown]
  - Dementia [Unknown]
  - Pain [Not Recovered/Not Resolved]
  - Diabetes mellitus [Unknown]
  - Asthenia [Unknown]
  - Blister [Unknown]
  - Dupuytren^s contracture [Unknown]
  - Blood potassium increased [Unknown]
  - Nodal arrhythmia [Unknown]
  - Syncope [Unknown]
  - Carotid artery stenosis [Unknown]
  - Pulmonary calcification [Unknown]
  - Compression fracture [Unknown]
  - Dyspepsia [Unknown]
  - Constipation [Unknown]
  - Abdominal distension [Unknown]
  - Back pain [Unknown]
  - Tendonitis [Unknown]
  - Internal fixation of fracture [Unknown]
